FAERS Safety Report 16771353 (Version 2)
Quarter: 2019Q4

REPORT INFORMATION
  Report Type: Spontaneous
  Country: US (occurrence: US)
  Receive Date: 20190904
  Receipt Date: 20191121
  Transmission Date: 20200122
  Serious: No
  Sender: FDA-Public Use
  Company Number: US-PFIZER INC-2019363347

PATIENT
  Age: 61 Year
  Sex: Male

DRUGS (1)
  1. PRISTIQ EXTENDED-RELEASE [Suspect]
     Active Substance: DESVENLAFAXINE SUCCINATE
     Dosage: PRISTIQ ER 100 MG / STRENGTH: 50 MG, DIRECTIONS: 1 Q AM (EACH MORNING)

REACTIONS (1)
  - Circumstance or information capable of leading to medication error [Unknown]
